FAERS Safety Report 21161555 (Version 3)
Quarter: 2022Q3

REPORT INFORMATION
  Report Type: Spontaneous
  Country: DE (occurrence: DE)
  Receive Date: 20220802
  Receipt Date: 20220811
  Transmission Date: 20221027
  Serious: Yes (Hospitalization, Other)
  Sender: FDA-Public Use
  Company Number: DE-LESVI-2022002532

PATIENT
  Age: 53 Year
  Sex: Female

DRUGS (4)
  1. LORAZEPAM [Suspect]
     Active Substance: LORAZEPAM
     Indication: Anxiolytic therapy
     Dosage: 0.25 MG STEPS OVER SEVERAL DAYS
  2. LORAZEPAM [Suspect]
     Active Substance: LORAZEPAM
     Dosage: 1 MG, 1X/DAY
  3. LORAZEPAM [Suspect]
     Active Substance: LORAZEPAM
     Dosage: REDUCED IN STEPS OF 0.5 MG
  4. LORAZEPAM [Suspect]
     Active Substance: LORAZEPAM
     Dosage: DAILY DOSE OF 2 MG BEFORE ADMISSION

REACTIONS (6)
  - Cognitive disorder [Unknown]
  - Drug tolerance [Unknown]
  - Performance status decreased [Unknown]
  - Delirium [Recovered/Resolved]
  - Hallucination, visual [Recovered/Resolved]
  - Condition aggravated [Recovered/Resolved]
